FAERS Safety Report 25094294 (Version 1)
Quarter: 2025Q1

REPORT INFORMATION
  Report Type: Spontaneous
  Country: US (occurrence: US)
  Receive Date: 20250319
  Receipt Date: 20250319
  Transmission Date: 20250409
  Serious: No
  Sender: Kenvue
  Company Number: US-KENVUE-20250205348

PATIENT
  Age: 47 Year
  Sex: Female

DRUGS (1)
  1. ZYRTEC [Suspect]
     Active Substance: CETIRIZINE HYDROCHLORIDE
     Indication: Product used for unknown indication
     Dosage: 10 MILLIGRAM, ONCE A DAY (20 MG IN 24 HOURS)
     Route: 065
     Dates: start: 20250216

REACTIONS (2)
  - Hypoaesthesia oral [Unknown]
  - Overdose [Unknown]

NARRATIVE: CASE EVENT DATE: 20250217
